FAERS Safety Report 4553246-6 (Version None)
Quarter: 2005Q1

REPORT INFORMATION
  Report Type: 
  Country: None (occurrence: None)
  Receive Date: 20050113
  Receipt Date: 20041231
  Transmission Date: 20050727
  Serious: Yes (Hospitalization)
  Sender: FDA-Public Use
  Company Number: 2005001534

PATIENT
  Age: 60 Year
  Sex: Female

DRUGS (8)
  1. UNASYN [Suspect]
     Indication: PYODERMA
     Dosage: 1.5 GRAM (1 D), INTRAMUSCULAR
     Route: 030
     Dates: start: 20041126, end: 20041127
  2. HEPARIN-FRACTION, SODIUM SALT (HEPARIN-FRACTION, SODIUM SALT) [Concomitant]
  3. POTASSIUM CANRENOATE (POTASSIUM CANRENOATE) [Concomitant]
  4. AMLODIPINE BESYLATE [Concomitant]
  5. METFORMIN HCL [Concomitant]
  6. INSULIN [Concomitant]
  7. ALL OTHER THERAPEUTIC PRODUCTS (ALL OTHER THERAPEUTIC PRODUCTS) [Concomitant]
  8. LISINOPRIL [Concomitant]

REACTIONS (2)
  - ANGIONEUROTIC OEDEMA [None]
  - INJECTION SITE ERYTHEMA [None]
